FAERS Safety Report 4994774-9 (Version None)
Quarter: 2006Q1

REPORT INFORMATION
  Report Type: 
  Country: None (occurrence: None)
  Receive Date: 20060313
  Receipt Date: 20050519
  Transmission Date: 20060701
  Serious: Yes (Other)
  Sender: FDA-Public Use
  Company Number: PHEH2005US05750

PATIENT
  Age: 69 Year
  Sex: Male

DRUGS (4)
  1. TRILEPTAL [Suspect]
     Indication: CONVULSION
     Dosage: 150 MG,BID,ORAL;300 MG,BID,ORAL
     Route: 048
     Dates: start: 20050509, end: 20050510
  2. TRILEPTAL [Suspect]
     Indication: SYNCOPE
     Dosage: 150 MG,BID,ORAL;300 MG,BID,ORAL
     Route: 048
     Dates: start: 20050509, end: 20050510
  3. TRILEPTAL [Suspect]
     Indication: CONVULSION
     Dosage: 150 MG,BID,ORAL;300 MG,BID,ORAL
     Route: 048
     Dates: start: 20050511, end: 20050516
  4. TRILEPTAL [Suspect]
     Indication: SYNCOPE
     Dosage: 150 MG,BID,ORAL;300 MG,BID,ORAL
     Route: 048
     Dates: start: 20050511, end: 20050516

REACTIONS (1)
  - BLOOD SODIUM DECREASED [None]
